FAERS Safety Report 26183883 (Version 1)
Quarter: 2025Q4

REPORT INFORMATION
  Report Type: Spontaneous
  Country: CA (occurrence: CA)
  Receive Date: 20251221
  Receipt Date: 20251221
  Transmission Date: 20260118
  Serious: Yes (Hospitalization, Other)
  Sender: Haleon PLC
  Company Number: CA-HALEON-2280155

PATIENT
  Age: 69 Year
  Sex: Female

DRUGS (22)
  1. DICLOFENAC [Suspect]
     Active Substance: DICLOFENAC
     Indication: Product used for unknown indication
  2. DICLOFENAC [Suspect]
     Active Substance: DICLOFENAC
     Dosage: ROUTE OF ADMINISTRATION: UNKNOWN
  3. COSENTYX [Suspect]
     Active Substance: SECUKINUMAB
     Indication: Ankylosing spondylitis
     Dosage: DOSE FORM: SOLUTION FOR INJECTION
  4. COSENTYX [Suspect]
     Active Substance: SECUKINUMAB
     Dosage: DOSE FORM: SOLUTION FOR INJECTION
  5. COSENTYX [Suspect]
     Active Substance: SECUKINUMAB
     Dosage: DOSE FORM: SOLUTION FOR INJECTION
  6. COSENTYX [Suspect]
     Active Substance: SECUKINUMAB
     Dosage: DOSE FORM: SOLUTION FOR INJECTION
  7. COSENTYX [Suspect]
     Active Substance: SECUKINUMAB
     Dosage: DOSE FORM: SOLUTION FOR INJECTION?ROUTE OF ADMINISTRATION: UNKNOWN
  8. COSENTYX [Suspect]
     Active Substance: SECUKINUMAB
     Dosage: DOSE FORM: SOLUTION FOR INJECTION
  9. COSENTYX [Suspect]
     Active Substance: SECUKINUMAB
     Dosage: DOSE FORM: SOLUTION FOR INJECTION
  10. COSENTYX [Suspect]
     Active Substance: SECUKINUMAB
     Dosage: DOSE FORM: SOLUTION FOR INJECTION
  11. COSENTYX [Suspect]
     Active Substance: SECUKINUMAB
     Indication: Ankylosing spondylitis
  12. CELEBREX [Concomitant]
     Active Substance: CELECOXIB
     Indication: Product used for unknown indication
     Dosage: ROUTE OF ADMINISTRATION: UNKNOWN
  13. CELEBREX [Concomitant]
     Active Substance: CELECOXIB
  14. CELEBREX [Concomitant]
     Active Substance: CELECOXIB
  15. DILAUDID [Concomitant]
     Active Substance: HYDROMORPHONE HYDROCHLORIDE
     Indication: Product used for unknown indication
     Dosage: ROUTE OF ADMINISTRATION: UNKNOWN
  16. IBUPROFEN [Concomitant]
     Active Substance: IBUPROFEN
     Indication: Product used for unknown indication
  17. NAPROXEN [Concomitant]
     Active Substance: NAPROXEN
     Indication: Product used for unknown indication
  18. NAPROXEN [Concomitant]
     Active Substance: NAPROXEN
     Dosage: ROUTE OF ADMINISTRATION: UNKNOWN
  19. NAPROXEN [Concomitant]
     Active Substance: NAPROXEN
  20. NAPROXEN [Concomitant]
     Active Substance: NAPROXEN
     Dosage: ROUTE OF ADMINISTRATION: UNKNOWN
  21. SIMPONI [Concomitant]
     Active Substance: GOLIMUMAB
     Indication: Product used for unknown indication
     Dosage: DOSE FORM: SOLUTION SUBCUTANEOUS
  22. STATEX [Concomitant]
     Indication: Product used for unknown indication
     Dosage: ROUTE OF ADMINISTRATION: UNKNOWN

REACTIONS (22)
  - Nephrolithiasis [Not Recovered/Not Resolved]
  - Ankle fracture [Not Recovered/Not Resolved]
  - Arthralgia [Not Recovered/Not Resolved]
  - Back pain [Not Recovered/Not Resolved]
  - Cataract [Not Recovered/Not Resolved]
  - Contraindicated product administered [Not Recovered/Not Resolved]
  - Erythema [Not Recovered/Not Resolved]
  - Fall [Not Recovered/Not Resolved]
  - Mouth ulceration [Not Recovered/Not Resolved]
  - Musculoskeletal stiffness [Not Recovered/Not Resolved]
  - Neck pain [Not Recovered/Not Resolved]
  - Phlebitis [Not Recovered/Not Resolved]
  - Pyrexia [Not Recovered/Not Resolved]
  - Skin irritation [Not Recovered/Not Resolved]
  - Urinary tract infection [Not Recovered/Not Resolved]
  - COVID-19 [Not Recovered/Not Resolved]
  - Discomfort [Not Recovered/Not Resolved]
  - Fatigue [Not Recovered/Not Resolved]
  - Influenza [Not Recovered/Not Resolved]
  - Joint swelling [Not Recovered/Not Resolved]
  - Pruritus [Not Recovered/Not Resolved]
  - Vulvovaginal burning sensation [Not Recovered/Not Resolved]
